FAERS Safety Report 18979889 (Version 1)
Quarter: 2021Q1

REPORT INFORMATION
  Report Type: Spontaneous
  Country: US (occurrence: US)
  Receive Date: 20210305
  Receipt Date: 20210305
  Transmission Date: 20210420
  Serious: Yes (Other)
  Sender: FDA-Public Use
  Company Number: None

PATIENT
  Age: 72 Year
  Sex: Female
  Weight: 115.2 kg

DRUGS (22)
  1. LORAZEPAM. [Concomitant]
     Active Substance: LORAZEPAM
  2. AMLODIPINE [Concomitant]
     Active Substance: AMLODIPINE BESYLATE
  3. DEXAMETHASONE. [Concomitant]
     Active Substance: DEXAMETHASONE
  4. ESCITALOPRAM [Concomitant]
     Active Substance: ESCITALOPRAM OXALATE
  5. TRULICITY [Concomitant]
     Active Substance: DULAGLUTIDE
  6. FLUTICASONE. [Concomitant]
     Active Substance: FLUTICASONE
  7. ESOMETPRAZOLE [Concomitant]
  8. CENTRUM ADULTS [Concomitant]
  9. CALTRATE [Concomitant]
     Active Substance: CALCIUM CARBONATE
  10. TAMOXIFEN [Concomitant]
     Active Substance: TAMOXIFEN
  11. MORPHINE SULFATE. [Concomitant]
     Active Substance: MORPHINE SULFATE
  12. FULVESTRANT. [Concomitant]
     Active Substance: FULVESTRANT
  13. VITAMIN D3 [Concomitant]
     Active Substance: CHOLECALCIFEROL
  14. SYNJARDY XR [Concomitant]
     Active Substance: EMPAGLIFLOZIN\METFORMIN HYDROCHLORIDE
  15. ASPIRIN. [Concomitant]
     Active Substance: ASPIRIN
  16. EVEROLIMUS. [Suspect]
     Active Substance: EVEROLIMUS
     Indication: BREAST CANCER
     Route: 048
     Dates: start: 20201222, end: 20210305
  17. WIXELAINHUB [Concomitant]
  18. VENTOLIN HFA [Concomitant]
     Active Substance: ALBUTEROL SULFATE
  19. VALSARTAIN?HCTZ [Concomitant]
  20. CLONIDINE. [Concomitant]
     Active Substance: CLONIDINE
  21. ROSUVASTATIN. [Concomitant]
     Active Substance: ROSUVASTATIN
  22. LEVOTHYROXINE. [Concomitant]
     Active Substance: LEVOTHYROXINE

REACTIONS (1)
  - Vomiting [None]

NARRATIVE: CASE EVENT DATE: 20210305
